FAERS Safety Report 9562039 (Version 2)
Quarter: 2013Q4

REPORT INFORMATION
  Report Type: Spontaneous
  Country: US (occurrence: US)
  Receive Date: 20130927
  Receipt Date: 20131017
  Transmission Date: 20140711
  Serious: No
  Sender: FDA-Public Use
  Company Number: US-PFIZER INC-2013276953

PATIENT
  Age: 39 Year
  Sex: Female
  Weight: 68.03 kg

DRUGS (3)
  1. LYRICA [Suspect]
     Indication: CERVICAL VERTEBRAL FRACTURE
     Dosage: 75 MG, 3X/DAY
     Dates: start: 2012
  2. LYRICA [Suspect]
     Indication: NEURALGIA
  3. METHADONE [Concomitant]
     Indication: PAIN
     Dosage: UNK

REACTIONS (8)
  - Off label use [Unknown]
  - Blood glucose increased [Not Recovered/Not Resolved]
  - Hyperhidrosis [Not Recovered/Not Resolved]
  - Asthenia [Not Recovered/Not Resolved]
  - Swelling [Not Recovered/Not Resolved]
  - Thirst [Not Recovered/Not Resolved]
  - Malaise [Not Recovered/Not Resolved]
  - Depression [Not Recovered/Not Resolved]
